FAERS Safety Report 16979304 (Version 7)
Quarter: 2020Q3

REPORT INFORMATION
  Report Type: Spontaneous
  Country: US (occurrence: US)
  Receive Date: 20191031
  Receipt Date: 20200916
  Transmission Date: 20201102
  Serious: Yes (Hospitalization)
  Sender: FDA-Public Use
  Company Number: US-PFIZER INC-2019120168

PATIENT
  Age: 61 Year
  Sex: Female
  Weight: 47 kg

DRUGS (2)
  1. CELEBREX [Suspect]
     Active Substance: CELECOXIB
     Indication: ARTHRITIS
     Dosage: 200 MG, 2X/DAY
     Route: 048
  2. CELEBREX [Suspect]
     Active Substance: CELECOXIB
     Indication: UPPER LIMB FRACTURE

REACTIONS (3)
  - Sensitivity to weather change [Not Recovered/Not Resolved]
  - Arthritis [Recovered/Resolved]
  - Memory impairment [Unknown]
